FAERS Safety Report 8424082-5 (Version None)
Quarter: 2012Q2

REPORT INFORMATION
  Report Type: 
  Country: None (occurrence: None)
  Receive Date: 20120608
  Receipt Date: 20111111
  Transmission Date: 20120825
  Serious: No
  Sender: FDA-Public Use
  Company Number: US-ASTRAZENECA-2010SE05115

PATIENT
  Age: 75 Year
  Sex: Female
  Weight: 66.2 kg

DRUGS (7)
  1. SYMBICORT [Suspect]
     Dosage: ONE PUFF TWO TIMES A DAY
     Route: 055
  2. XANAX [Concomitant]
  3. VASOTEC [Concomitant]
  4. FOSAMAX [Concomitant]
  5. SYMBICORT [Suspect]
     Indication: CHRONIC OBSTRUCTIVE PULMONARY DISEASE
     Dosage: 160/4.5 TWO PUFFS TWO TIMES A DAY
     Route: 055
     Dates: start: 20091201
  6. MIRALAX [Concomitant]
  7. PULMICORT FLEXHALER [Suspect]
     Route: 055

REACTIONS (5)
  - INCORRECT DOSE ADMINISTERED [None]
  - DRUG EFFECT DECREASED [None]
  - CHEST DISCOMFORT [None]
  - NERVOUSNESS [None]
  - DYSPNOEA [None]
